FAERS Safety Report 10207672 (Version 1)
Quarter: 2014Q2

REPORT INFORMATION
  Report Type: Spontaneous
  Country: US (occurrence: US)
  Receive Date: 20140530
  Receipt Date: 20140530
  Transmission Date: 20141212
  Serious: No
  Sender: FDA-Public Use
  Company Number: US-GLAXOSMITHKLINE-A1054301A

PATIENT
  Sex: Male

DRUGS (7)
  1. VENTOLIN [Suspect]
     Indication: DYSPNOEA
     Dosage: 1PUFF AS REQUIRED
     Route: 055
  2. VYTORIN [Concomitant]
  3. B-COMPLEX VITAMIN [Concomitant]
  4. CALCIUM [Concomitant]
  5. SYMBICORT [Concomitant]
  6. SPIRIVA [Concomitant]
  7. OXYGEN [Concomitant]

REACTIONS (1)
  - Dyspnoea exertional [Unknown]
